FAERS Safety Report 10156231 (Version 6)
Quarter: 2014Q2

REPORT INFORMATION
  Report Type: Spontaneous
  Country: SE (occurrence: SE)
  Receive Date: 20140507
  Receipt Date: 20140613
  Transmission Date: 20141212
  Serious: Yes (Life-Threatening)
  Sender: FDA-Public Use
  Company Number: SE-ROCHE-1396548

PATIENT
  Age: 67 Year
  Sex: Female

DRUGS (4)
  1. MABTHERA [Suspect]
     Indication: RHEUMATOID ARTHRITIS
     Dosage: SINGLE DOSE?LAST DOSE PRIOR TO SERIOUS ADVERSE EVENT: 16/OCT/2013
     Route: 065
     Dates: start: 20120307
  2. METHOTREXATE [Suspect]
     Indication: RHEUMATOID ARTHRITIS
     Route: 065
     Dates: start: 20080505, end: 20140430
  3. ENBREL [Concomitant]
     Indication: RHEUMATOID ARTHRITIS
  4. CIMZIA [Concomitant]
     Indication: RHEUMATOID ARTHRITIS

REACTIONS (1)
  - Bile duct cancer [Not Recovered/Not Resolved]
